FAERS Safety Report 17460486 (Version 2)
Quarter: 2020Q1

REPORT INFORMATION
  Report Type: Spontaneous
  Country: US (occurrence: US)
  Receive Date: 20200226
  Receipt Date: 20200228
  Transmission Date: 20200409
  Serious: Yes (Other)
  Sender: FDA-Public Use
  Company Number: US-PFIZER INC-2020084826

PATIENT
  Age: 48 Year
  Sex: Female
  Weight: 67.59 kg

DRUGS (1)
  1. CHANTIX [Suspect]
     Active Substance: VARENICLINE TARTRATE
     Indication: SMOKING CESSATION THERAPY
     Dosage: UNK
     Dates: start: 2015

REACTIONS (2)
  - Vaginal haemorrhage [Recovered/Resolved]
  - Metrorrhagia [Unknown]

NARRATIVE: CASE EVENT DATE: 2015
